FAERS Safety Report 16956546 (Version 2)
Quarter: 2019Q4

REPORT INFORMATION
  Report Type: Spontaneous
  Country: US (occurrence: US)
  Receive Date: 20191024
  Receipt Date: 20191115
  Transmission Date: 20200122
  Serious: Yes (Other)
  Sender: FDA-Public Use
  Company Number: US-BAYER-2019-189392

PATIENT
  Age: 17 Year
  Sex: Female

DRUGS (2)
  1. SKYLA [Suspect]
     Active Substance: LEVONORGESTREL
     Indication: CONTRACEPTION
     Dosage: 14 MCG/24HR, CONT
     Route: 015
     Dates: start: 20190828, end: 20190828
  2. BETADINE ALCOOLICO [Concomitant]
     Active Substance: POVIDONE-IODINE

REACTIONS (6)
  - Post procedural discomfort [Recovering/Resolving]
  - Anxiety [None]
  - Dyspnoea [None]
  - Adverse drug reaction [None]
  - Dizziness [None]
  - Procedural pain [Recovered/Resolved]

NARRATIVE: CASE EVENT DATE: 20190828
